FAERS Safety Report 16616422 (Version 2)
Quarter: 2019Q3

REPORT INFORMATION
  Report Type: Spontaneous
  Country: CZ (occurrence: CZ)
  Receive Date: 20190723
  Receipt Date: 20190724
  Transmission Date: 20191004
  Serious: Yes (Other)
  Sender: FDA-Public Use
  Company Number: CZ-IPSEN BIOPHARMACEUTICALS, INC.-2019-12793

PATIENT
  Sex: Female

DRUGS (3)
  1. LANREOTIDE AUTOGEL [Suspect]
     Active Substance: LANREOTIDE
     Indication: OFF LABEL USE
  2. DOXORUBICIN [Concomitant]
     Active Substance: DOXORUBICIN
     Indication: PHAEOCHROMOCYTOMA
  3. LANREOTIDE AUTOGEL [Suspect]
     Active Substance: LANREOTIDE
     Indication: PHAEOCHROMOCYTOMA
     Route: 065
     Dates: start: 200906

REACTIONS (2)
  - Off label use [Unknown]
  - Disease progression [Unknown]
